FAERS Safety Report 11960659 (Version 1)
Quarter: 2016Q1

REPORT INFORMATION
  Report Type: Report from Study
  Country: US (occurrence: US)
  Receive Date: 20160126
  Receipt Date: 20160126
  Transmission Date: 20160526
  Serious: No
  Sender: FDA-Public Use
  Company Number: US-ABBVIE-15K-163-1370324-00

PATIENT
  Sex: Female

DRUGS (2)
  1. HUMIRA [Suspect]
     Active Substance: ADALIMUMAB
     Indication: RHEUMATOID ARTHRITIS
     Route: 065
  2. ALVIRA [Concomitant]
     Indication: ARTHRITIS

REACTIONS (7)
  - Injection site urticaria [Unknown]
  - Rash [Unknown]
  - Injection site pain [Unknown]
  - Injection site erythema [Unknown]
  - Musculoskeletal stiffness [Unknown]
  - Injection site pruritus [Not Recovered/Not Resolved]
  - Skin exfoliation [Unknown]
